FAERS Safety Report 9160956 (Version 1)
Quarter: 2013Q1

REPORT INFORMATION
  Report Type: Spontaneous
  Country: US (occurrence: US)
  Receive Date: 20130313
  Receipt Date: 20130313
  Transmission Date: 20140127
  Serious: No
  Sender: FDA-Public Use
  Company Number: US-PFIZER INC-2013080040

PATIENT
  Age: 88 Year
  Sex: Female
  Weight: 52.15 kg

DRUGS (1)
  1. NIFEDIPINE [Suspect]
     Dosage: UNK

REACTIONS (6)
  - Visual acuity reduced [Unknown]
  - Diplopia [Unknown]
  - Intraocular pressure increased [Unknown]
  - Arthritis [Unknown]
  - Herpes zoster [Unknown]
  - Dysstasia [Unknown]
